FAERS Safety Report 4908583-X (Version None)
Quarter: 2006Q1

REPORT INFORMATION
  Report Type: 
  Country: None (occurrence: None)
  Receive Date: 20060210
  Receipt Date: 20050906
  Transmission Date: 20060701
  Serious: No
  Sender: FDA-Public Use
  Company Number: US-GLAXOSMITHKLINE-A0573141A

PATIENT
  Age: 40 Year
  Sex: Female

DRUGS (3)
  1. PAXIL CR [Suspect]
     Indication: DEPRESSION
     Dosage: 25MG PER DAY
     Route: 048
     Dates: start: 20040601, end: 20050301
  2. DESYREL [Concomitant]
  3. STRATTERA [Concomitant]

REACTIONS (16)
  - AGITATION [None]
  - ANOREXIA [None]
  - DIARRHOEA [None]
  - DRUG INEFFECTIVE [None]
  - DYSKINESIA [None]
  - HEADACHE [None]
  - HEART RATE INCREASED [None]
  - HYPERACUSIS [None]
  - HYPOAESTHESIA [None]
  - NAUSEA [None]
  - PAIN [None]
  - PANIC REACTION [None]
  - PARAESTHESIA [None]
  - PHOTOSENSITIVITY REACTION [None]
  - SPEECH DISORDER [None]
  - SUFFOCATION FEELING [None]
